FAERS Safety Report 16616332 (Version 1)
Quarter: 2019Q3

REPORT INFORMATION
  Report Type: Spontaneous
  Country: FR (occurrence: FR)
  Receive Date: 20190723
  Receipt Date: 20190723
  Transmission Date: 20191004
  Serious: Yes (Hospitalization)
  Sender: FDA-Public Use
  Company Number: FR-MYLANLABS-2019M1068286

PATIENT
  Age: 26 Year
  Sex: Female

DRUGS (4)
  1. ACUPAN [Suspect]
     Active Substance: NEFOPAM HYDROCHLORIDE
     Indication: PAIN
     Dosage: 32 MILLILITER, QH
     Route: 042
     Dates: start: 201812
  2. EFFERALGAN CODEINE [Suspect]
     Active Substance: ACETAMINOPHEN\CODEINE PHOSPHATE
     Indication: PAIN
     Dosage: 6 GRAM, QD
     Route: 048
     Dates: start: 20180711
  3. KALINOX [Suspect]
     Active Substance: NITROUS OXIDE\OXYGEN
     Indication: PAIN
     Dosage: 1 DOSAGE FORM, PRN
     Route: 045
     Dates: start: 20181001
  4. TRAMADOL. [Suspect]
     Active Substance: TRAMADOL
     Indication: PAIN
     Dosage: 1 DOSAGE FORM, PRN
     Route: 048
     Dates: start: 20181222

REACTIONS (2)
  - Drug use disorder [Not Recovered/Not Resolved]
  - Condition aggravated [Not Recovered/Not Resolved]

NARRATIVE: CASE EVENT DATE: 20181001
